FAERS Safety Report 24868527 (Version 1)
Quarter: 2025Q1

REPORT INFORMATION
  Report Type: Spontaneous
  Country: US (occurrence: US)
  Receive Date: 20250121
  Receipt Date: 20250121
  Transmission Date: 20250408
  Serious: No
  Sender: ALKERMES
  Company Number: US-ALKERMES INC.-ALK-2025-000085

PATIENT
  Sex: Male
  Weight: 90.703 kg

DRUGS (2)
  1. VIVITROL [Suspect]
     Active Substance: NALTREXONE
     Indication: Alcoholism
     Route: 030
     Dates: start: 202411
  2. VIVITROL [Suspect]
     Active Substance: NALTREXONE
     Route: 030
     Dates: start: 2023, end: 2023

REACTIONS (9)
  - Therapeutic response shortened [Unknown]
  - Hepatic enzyme increased [Unknown]
  - Dizziness [Not Recovered/Not Resolved]
  - Depression [Recovered/Resolved]
  - Constipation [Recovered/Resolved]
  - Injection site infection [Recovered/Resolved]
  - Headache [Recovered/Resolved]
  - Alcoholism [Recovered/Resolved]
  - Malaise [Recovered/Resolved]

NARRATIVE: CASE EVENT DATE: 20230101
